FAERS Safety Report 6756991-7 (Version None)
Quarter: 2010Q2

REPORT INFORMATION
  Report Type: 
  Country: None (occurrence: None)
  Receive Date: 20100604
  Receipt Date: 20100527
  Transmission Date: 20101027
  Serious: Yes (Hospitalization)
  Sender: FDA-Public Use
  Company Number: FR-ABBOTT-10P-056-0647747-00

PATIENT
  Sex: Female

DRUGS (21)
  1. SEVOFLURANE [Suspect]
     Indication: ANAESTHESIA
     Route: 055
     Dates: start: 20091201, end: 20091201
  2. SUFENTA PRESERVATIVE FREE [Suspect]
     Indication: ANAESTHESIA
     Route: 042
     Dates: start: 20091201, end: 20091201
  3. PROPOFOL [Suspect]
     Indication: ANAESTHESIA
     Route: 042
     Dates: start: 20091201, end: 20091201
  4. ATRACURIUM [Suspect]
     Indication: ANAESTHESIA
     Route: 042
     Dates: start: 20091201, end: 20091201
  5. AUGMENTIN '125' [Suspect]
     Indication: DRUG USE FOR UNKNOWN INDICATION
     Dosage: 2G DAILY
     Route: 042
     Dates: start: 20091201, end: 20091201
  6. KETAMINE [Suspect]
     Indication: ANAESTHESIA
     Route: 055
     Dates: start: 20091201, end: 20091201
  7. NICARDIPINE HYDROCHLORIDE [Suspect]
     Indication: DRUG USE FOR UNKNOWN INDICATION
     Dosage: 1MG DAILY
     Route: 042
     Dates: start: 20091201, end: 20091201
  8. DROPERIDOL [Suspect]
     Indication: ANAESTHESIA
     Dosage: 1.25MG AT THE END OF SURGERY
     Route: 042
     Dates: start: 20091201, end: 20091201
  9. NEURONTIN [Suspect]
     Indication: DRUG USE FOR UNKNOWN INDICATION
     Dosage: 900MG BEFORE SURGERY
     Dates: start: 20091130, end: 20091201
  10. NEURONTIN [Suspect]
     Dosage: 600MG 2 HOURS BEFORE SURGERY
  11. NEURONTIN [Suspect]
     Dosage: 900MG/DAY 3 DAYS AFTER SURGERY
  12. BETADINE [Suspect]
     Indication: DRUG USE FOR UNKNOWN INDICATION
     Dosage: SHOWER BEFORE AND AFTER SURGERY
     Route: 061
     Dates: start: 20091130, end: 20091201
  13. NAROPIN [Suspect]
     Indication: DRUG USE FOR UNKNOWN INDICATION
     Dosage: 15MG DAILY
     Route: 058
     Dates: start: 20091201, end: 20091201
  14. VENTOLIN [Concomitant]
     Indication: DRUG USE FOR UNKNOWN INDICATION
  15. FLIXOTIDE [Concomitant]
     Indication: DRUG USE FOR UNKNOWN INDICATION
  16. FORADIL [Concomitant]
     Indication: DRUG USE FOR UNKNOWN INDICATION
  17. AERIUS [Concomitant]
     Indication: DRUG USE FOR UNKNOWN INDICATION
  18. LOVENOX [Concomitant]
     Indication: DRUG USE FOR UNKNOWN INDICATION
     Dosage: 0.4 ML BEFORE SURGERY AND 0.4 ML THE DAY OF SURGERY THEN 0.4 ML UNTIL 03-DEC-2009
  19. NORMACOL [Concomitant]
     Indication: DRUG USE FOR UNKNOWN INDICATION
     Dosage: BEFORE SURGERY
  20. BETADINE [Concomitant]
     Dosage: LOCAL ASEPSIS BEFORE SURGERY
  21. RINGER'S [Concomitant]
     Indication: DRUG USE FOR UNKNOWN INDICATION
     Dosage: 2 LITERS

REACTIONS (1)
  - RENAL FAILURE ACUTE [None]
